FAERS Safety Report 7137094-9 (Version None)
Quarter: 2010Q4

REPORT INFORMATION
  Report Type: 
  Country: None (occurrence: None)
  Receive Date: 20101206
  Receipt Date: 20101118
  Transmission Date: 20110411
  Serious: No
  Sender: FDA-Public Use
  Company Number: US-B.I. PHARMACEUTICALS,INC./RIDGEFIELD-2010-BP-12145BP

PATIENT
  Age: 58 Year
  Sex: Male
  Weight: 81.19 kg

DRUGS (2)
  1. MICARDIS [Suspect]
     Indication: HYPERTENSION
     Dosage: 40 MG
     Dates: end: 20101012
  2. SIMVASTATIN [Concomitant]
     Dates: start: 20070101

REACTIONS (3)
  - BRONCHITIS [None]
  - COUGH [None]
  - PNEUMONIA [None]
